FAERS Safety Report 15410863 (Version 1)
Quarter: 2018Q3

REPORT INFORMATION
  Report Type: Spontaneous
  Country: US (occurrence: US)
  Receive Date: 20180919
  Receipt Date: 20180919
  Transmission Date: 20181010
  Serious: Yes (Life-Threatening, Disabling)
  Sender: FDA-Public Use
  Company Number: None

PATIENT
  Age: 55 Year
  Sex: Male
  Weight: 69.75 kg

DRUGS (2)
  1. PROCHLORPERAZINE. [Suspect]
     Active Substance: PROCHLORPERAZINE
     Indication: MIGRAINE
     Dosage: ?          QUANTITY:1 DF DOSAGE FORM;OTHER FREQUENCY:EMERGENCY ROOM;?
     Route: 042
     Dates: start: 20180912, end: 20180912
  2. GOODY^S HEADACHE POWDER [Concomitant]

REACTIONS (3)
  - Heart rate irregular [None]
  - Agitation [None]
  - Insomnia [None]

NARRATIVE: CASE EVENT DATE: 20180912
